FAERS Safety Report 8121619-0 (Version None)
Quarter: 2012Q1

REPORT INFORMATION
  Report Type: 
  Country: None (occurrence: None)
  Receive Date: 20120208
  Receipt Date: 20120208
  Transmission Date: 20120608
  Serious: Yes (Other)
  Sender: FDA-Public Use
  Company Number: None

PATIENT
  Age: 58 Year
  Sex: Female
  Weight: 56 kg

DRUGS (1)
  1. CEFEPIME [Suspect]
     Indication: PNEUMONIA
     Dosage: 2GRAM
     Route: 042
     Dates: start: 20111124, end: 20111126

REACTIONS (11)
  - MYOCLONUS [None]
  - HAEMODIALYSIS COMPLICATION [None]
  - MENTAL STATUS CHANGES [None]
  - ANION GAP INCREASED [None]
  - SLOW SPEECH [None]
  - METABOLIC ENCEPHALOPATHY [None]
  - BLOOD UREA INCREASED [None]
  - NEUROTOXICITY [None]
  - HYPOGLYCAEMIA [None]
  - ELECTROENCEPHALOGRAM ABNORMAL [None]
  - CONVULSION [None]
